FAERS Safety Report 6524931-1 (Version None)
Quarter: 2009Q4

REPORT INFORMATION
  Report Type: 
  Country: None (occurrence: None)
  Receive Date: 20091214
  Receipt Date: 20090630
  Transmission Date: 20100525
  Serious: Yes (Other)
  Sender: FDA-Public Use
  Company Number: 641544

PATIENT
  Age: 52 Year
  Sex: Male

DRUGS (2)
  1. PEGASYS [Suspect]
     Indication: HEPATITIS C
     Dosage: 180 UG 1 PER WEEK
     Dates: start: 20081205, end: 20090609
  2. RIBAVIRIN [Suspect]
     Indication: HEPATITIS C
     Dosage: 1000 MG DAILY
     Dates: start: 20081205, end: 20090609

REACTIONS (6)
  - ANAEMIA [None]
  - DYSPNOEA [None]
  - HEADACHE [None]
  - LETHARGY [None]
  - PAIN IN EXTREMITY [None]
  - SOMNOLENCE [None]
